FAERS Safety Report 8454905-5 (Version None)
Quarter: 2012Q2

REPORT INFORMATION
  Report Type: 
  Country: None (occurrence: None)
  Receive Date: 20120621
  Receipt Date: 20120612
  Transmission Date: 20120825
  Serious: Yes (Death, Hospitalization)
  Sender: FDA-Public Use
  Company Number: CA-BAYER-2012-058573

PATIENT
  Age: 32 Year
  Sex: Female

DRUGS (2)
  1. YASMIN [Suspect]
     Indication: PREMENSTRUAL SYNDROME
  2. INHALED DRUG [Concomitant]
     Indication: ASTHMA
     Dosage: UNK UNK, PRN

REACTIONS (6)
  - SYNCOPE [None]
  - RESPIRATION ABNORMAL [None]
  - VENTRICULAR FIBRILLATION [None]
  - CARDIAC ARREST [None]
  - UNRESPONSIVE TO STIMULI [None]
  - ARRHYTHMIA [None]
